FAERS Safety Report 4448839-0 (Version None)
Quarter: 2004Q3

REPORT INFORMATION
  Report Type: 
  Country: None (occurrence: None)
  Receive Date: 20040909
  Receipt Date: 20040903
  Transmission Date: 20050211
  Serious: Yes (Hospitalization, Other)
  Sender: FDA-Public Use
  Company Number: ITWYE987519AUG04

PATIENT
  Age: 33 Year
  Sex: Female

DRUGS (2)
  1. TAZOCIN (PIPERACILLIN/TAZOBACTAM, INJECTION) [Suspect]
     Indication: OSTEOMYELITIS ACUTE
     Dosage: 12.6 GRAMS DAILY INTRAVENOUS
     Route: 042
     Dates: start: 20040728, end: 20040815
  2. TAZOCIN (PIPERACILLIN/TAZOBACTAM, INJECTION) [Suspect]
     Indication: PERIOSTITIS
     Dosage: 12.6 GRAMS DAILY INTRAVENOUS
     Route: 042
     Dates: start: 20040728, end: 20040815

REACTIONS (6)
  - ABDOMINAL PAIN [None]
  - BLOOD LACTATE DEHYDROGENASE INCREASED [None]
  - DISSEMINATED INTRAVASCULAR COAGULATION [None]
  - HEPATIC ENZYME INCREASED [None]
  - NEUTROPENIA [None]
  - PYREXIA [None]
